FAERS Safety Report 4970598-3 (Version None)
Quarter: 2006Q2

REPORT INFORMATION
  Report Type: 
  Country: None (occurrence: None)
  Receive Date: 20060412
  Receipt Date: 20051026
  Transmission Date: 20061013
  Serious: Yes (Other)
  Sender: FDA-Public Use
  Company Number: US-MERCK-0510USA09488

PATIENT
  Age: 57 Year
  Sex: Female
  Weight: 59 kg

DRUGS (57)
  1. CASANTHRANOL AND DOCUSATE POTASSIUM [Concomitant]
     Route: 065
  2. HYDROXYCHLOROQUINE SULFATE [Concomitant]
     Route: 065
  3. KLOR-CON [Concomitant]
     Route: 065
  4. LEVOTHYROXINE SODIUM [Concomitant]
     Route: 065
  5. LIPITOR [Concomitant]
     Route: 065
  6. MACROBID [Concomitant]
     Route: 065
  7. MERIDIA [Concomitant]
     Route: 065
  8. METOCLOPRAMIDE [Concomitant]
     Route: 065
  9. ELMIRON [Concomitant]
     Route: 065
  10. EVOXAC [Concomitant]
     Route: 065
  11. FOSAMAX [Concomitant]
     Route: 065
  12. FUROSEMIDE [Concomitant]
     Route: 065
  13. NEURONTIN [Concomitant]
     Route: 065
  14. NITROFURANTOIN [Concomitant]
     Route: 065
  15. NITROSTAT [Concomitant]
     Route: 065
  16. NULYTELY [Concomitant]
     Route: 065
  17. NYSTATIN [Concomitant]
     Route: 065
  18. PAXIL [Concomitant]
     Route: 065
  19. VIOXX [Suspect]
     Indication: SYSTEMIC LUPUS ERYTHEMATOSUS
     Route: 048
     Dates: start: 20000204, end: 20040913
  20. VIOXX [Suspect]
     Indication: ARTHRITIS
     Route: 048
     Dates: start: 20000204, end: 20040913
  21. ALPRAZOLAM [Concomitant]
     Route: 065
  22. ALTACE [Concomitant]
     Route: 065
  23. AMIODARONA [Concomitant]
     Route: 065
  24. AMITRIPTYLIN [Concomitant]
     Route: 065
  25. AMOXICILLIN [Concomitant]
     Route: 065
  26. ATENOLOL [Concomitant]
     Route: 065
  27. AUGMENTIN '125' [Concomitant]
     Route: 065
  28. BACTROBAN [Concomitant]
     Route: 065
  29. CALCIUM (UNSPECIFIED) [Concomitant]
     Route: 065
  30. CEFUROXIME [Concomitant]
     Route: 065
  31. CEPHALEXIN [Concomitant]
     Route: 065
  32. CIPRO [Concomitant]
     Route: 065
  33. CLARINEX [Concomitant]
     Route: 065
  34. CLOBETASOL PROPIONATE [Concomitant]
     Route: 065
  35. CLONAZEPAM [Concomitant]
     Route: 065
  36. CLOTRIMAZOLE [Concomitant]
     Route: 065
  37. CYCLOBENZAPRINE HYDROCHLORIDE [Concomitant]
     Route: 065
  38. DARVOCET [Concomitant]
     Route: 065
  39. DELTASONE [Concomitant]
     Route: 065
  40. PERCOCET [Concomitant]
     Route: 065
  41. PHENAZOPYRIDINE HYDROCHLORIDE [Concomitant]
     Route: 065
  42. PLAVIX [Concomitant]
     Route: 065
  43. PREMARIN [Concomitant]
     Route: 065
  44. PREVACID [Concomitant]
     Route: 065
  45. OMEPRAZOLE [Concomitant]
     Route: 065
  46. PROMETHAZINE [Concomitant]
     Route: 065
  47. PROTONIX [Concomitant]
     Route: 065
  48. SALAGEN [Concomitant]
     Route: 065
  49. SONATA [Concomitant]
     Route: 065
  50. SYNTHROID [Concomitant]
     Route: 065
  51. TAMOXIFEN CITRATE [Concomitant]
     Route: 065
  52. TETRACYCLINE [Concomitant]
     Route: 065
  53. TUSSIONEX [Concomitant]
     Route: 065
  54. URIMAX [Concomitant]
     Route: 065
  55. URISED TABLETS [Concomitant]
     Route: 065
  56. VICODIN [Concomitant]
     Route: 065
  57. ZITHROMAX [Concomitant]
     Route: 065

REACTIONS (3)
  - CARDIAC DISORDER [None]
  - ISCHAEMIA [None]
  - URETHRAL DISORDER [None]
